FAERS Safety Report 12919650 (Version 1)
Quarter: 2016Q4

REPORT INFORMATION
  Report Type: Spontaneous
  Country: US (occurrence: US)
  Receive Date: 20161108
  Receipt Date: 20161108
  Transmission Date: 20170207
  Serious: Yes (Other)
  Sender: FDA-Public Use
  Company Number: US-009507513-1511USA002661

PATIENT
  Age: 43 Year
  Sex: Female

DRUGS (25)
  1. LYRICA [Suspect]
     Active Substance: PREGABALIN
     Dosage: 150 MG, TID
     Route: 048
  2. CETIRIZINE HYDROCHLORIDE. [Suspect]
     Active Substance: CETIRIZINE HYDROCHLORIDE
     Dosage: 10 MG, QD
     Route: 048
  3. BAYER LOW DOSE [Suspect]
     Active Substance: ASPIRIN
     Dosage: 81 MG, QD
     Route: 048
  4. LEVOTHYROXINE SODIUM. [Suspect]
     Active Substance: LEVOTHYROXINE SODIUM
     Dosage: 50 UG, QD
     Route: 048
  5. TEGRETOL [Suspect]
     Active Substance: CARBAMAZEPINE
     Dosage: 800 MG, HS
     Route: 048
  6. CYMBALTA [Suspect]
     Active Substance: DULOXETINE HYDROCHLORIDE
     Dosage: 60 MG, BID
     Route: 048
  7. INSULIN DETEMIR [Suspect]
     Active Substance: INSULIN DETEMIR
     Dosage: 47 IU, QAM
     Route: 058
  8. OMEGA-3 MARINE TRIGLYCERIDES [Suspect]
     Active Substance: FISH OIL
     Dosage: UNK UNK, QD
  9. PRILOSEC [Suspect]
     Active Substance: OMEPRAZOLE MAGNESIUM
     Dosage: 40 MG, QD
     Route: 048
  10. LIDODERM [Suspect]
     Active Substance: LIDOCAINE
     Dosage: 3 DF, 12 HOURS ON IT AND 12 HOURS OFF IT
     Route: 062
  11. FLUTICASONE PROPIONATE. [Suspect]
     Active Substance: FLUTICASONE PROPIONATE
     Dosage: UNK, QD
     Route: 045
  12. TEGRETOL [Suspect]
     Active Substance: CARBAMAZEPINE
     Dosage: 400 MG, QAM
     Route: 048
  13. PROVIGIL [Suspect]
     Active Substance: MODAFINIL
     Dosage: 1.5 DF, QD
     Route: 048
  14. METHOCARBAMOL. [Suspect]
     Active Substance: METHOCARBAMOL
     Dosage: 500 MG, BID
     Route: 048
  15. MELOXICAM. [Suspect]
     Active Substance: MELOXICAM
     Dosage: 15 MG, BID
     Route: 048
  16. POLYETHYLENE GLYCOL 3350. [Suspect]
     Active Substance: POLYETHYLENE GLYCOL 3350
     Dosage: 17 G, QD
     Route: 048
  17. PROVIGIL [Suspect]
     Active Substance: MODAFINIL
     Dosage: 200 MG, QD
     Route: 048
  18. METHADOSE [Suspect]
     Active Substance: METHADONE HYDROCHLORIDE
     Dosage: 10 MG, PID
     Route: 048
  19. INSULIN DETEMIR [Suspect]
     Active Substance: INSULIN DETEMIR
     Dosage: 47 IU, HS
     Route: 058
  20. PROPRANOLOL [Suspect]
     Active Substance: PROPRANOLOL\PROPRANOLOL HYDROCHLORIDE
     Dosage: 20 MG, BID
     Route: 048
  21. BACLOFEN. [Suspect]
     Active Substance: BACLOFEN
     Dosage: 20 MG, TID
     Route: 048
  22. VITAMIN E [Suspect]
     Active Substance: .ALPHA.-TOCOPHEROL
     Dosage: UNK UNK, QD
  23. PRINIVIL [Suspect]
     Active Substance: LISINOPRIL
     Dosage: 10 MG, QD
     Route: 048
  24. MK-0733 [Suspect]
     Active Substance: SIMVASTATIN
     Dosage: 40 MG, QD
     Route: 048
  25. LYRICA [Suspect]
     Active Substance: PREGABALIN
     Dosage: 150 MG, QID
     Route: 048

REACTIONS (3)
  - Fatigue [Unknown]
  - Seizure [Unknown]
  - Fibromyalgia [Unknown]
